FAERS Safety Report 9405430 (Version 5)
Quarter: 2015Q3

REPORT INFORMATION
  Report Type: Spontaneous
  Country: US (occurrence: US)
  Receive Date: 20130717
  Receipt Date: 20150823
  Transmission Date: 20151125
  Serious: Yes (Hospitalization, Other)
  Sender: FDA-Public Use
  Company Number: US-009507513-1307USA004641

PATIENT
  Sex: Female

DRUGS (3)
  1. BONIVA [Suspect]
     Active Substance: IBANDRONATE SODIUM
     Indication: OSTEOPENIA
     Dosage: UNK
     Route: 048
     Dates: start: 2006
  2. FOSAMAX [Suspect]
     Active Substance: ALENDRONATE SODIUM
     Indication: OSTEOPOROSIS PROPHYLAXIS
     Dosage: 70 MG, QW
     Route: 048
     Dates: start: 2001, end: 2006
  3. BONIVA [Suspect]
     Active Substance: IBANDRONATE SODIUM
     Indication: OSTEOPOROSIS

REACTIONS (14)
  - Femur fracture [Unknown]
  - Obesity [Unknown]
  - Hernia [Unknown]
  - Arrhythmia [Unknown]
  - Hypertension [Unknown]
  - Diabetes mellitus [Unknown]
  - Anaemia postoperative [Unknown]
  - Dyslipidaemia [Unknown]
  - Fall [Unknown]
  - Incision site haematoma [Recovering/Resolving]
  - Femur fracture [Unknown]
  - Fall [Unknown]
  - Coronary artery disease [Unknown]
  - Chronic sinusitis [Unknown]

NARRATIVE: CASE EVENT DATE: 20060720
